FAERS Safety Report 4765577-5 (Version None)
Quarter: 2005Q3

REPORT INFORMATION
  Report Type: 
  Country: None (occurrence: None)
  Receive Date: 20050906
  Receipt Date: 20050825
  Transmission Date: 20060218
  Serious: Yes (Other)
  Sender: FDA-Public Use
  Company Number: 2005120502

PATIENT
  Sex: 0

DRUGS (1)
  1. FRAGMIN [Suspect]
     Indication: VENOUS THROMBOSIS LIMB
     Dosage: UNKNOWN
     Route: 065

REACTIONS (2)
  - DEEP VEIN THROMBOSIS [None]
  - DISEASE PROGRESSION [None]
